FAERS Safety Report 8115139-7 (Version None)
Quarter: 2012Q1

REPORT INFORMATION
  Report Type: 
  Country: None (occurrence: None)
  Receive Date: 20120206
  Receipt Date: 20120130
  Transmission Date: 20120608
  Serious: Yes (Disabling)
  Sender: FDA-Public Use
  Company Number: US-JNJFOC-20110707393

PATIENT
  Sex: Male
  Weight: 90.72 kg

DRUGS (3)
  1. CONCERTA [Suspect]
     Route: 048
     Dates: start: 20030101
  2. CONCERTA [Suspect]
     Indication: ATTENTION DEFICIT/HYPERACTIVITY DISORDER
     Route: 048
     Dates: start: 20110502, end: 20111013
  3. CONCERTA [Suspect]
     Route: 048

REACTIONS (2)
  - DISABILITY [None]
  - DRUG INEFFECTIVE [None]
